FAERS Safety Report 16464399 (Version 3)
Quarter: 2019Q3

REPORT INFORMATION
  Report Type: Report from Study
  Country: US (occurrence: US)
  Receive Date: 20190621
  Receipt Date: 20190717
  Transmission Date: 20191004
  Serious: Yes (Other)
  Sender: FDA-Public Use
  Company Number: PHEH2019US025970

PATIENT
  Sex: Female

DRUGS (1)
  1. ENTRESTO [Suspect]
     Active Substance: SACUBITRIL\VALSARTAN
     Indication: CARDIAC FAILURE
     Route: 048

REACTIONS (7)
  - Gait disturbance [Unknown]
  - Back disorder [Unknown]
  - Pain in extremity [Not Recovered/Not Resolved]
  - Device loosening [Unknown]
  - Hypoaesthesia [Unknown]
  - Concomitant disease aggravated [Not Recovered/Not Resolved]
  - Arthralgia [Not Recovered/Not Resolved]
